FAERS Safety Report 10205757 (Version 4)
Quarter: 2014Q2

REPORT INFORMATION
  Report Type: Spontaneous
  Country: JP (occurrence: JP)
  Receive Date: 20140530
  Receipt Date: 20140617
  Transmission Date: 20141212
  Serious: Yes (Other)
  Sender: FDA-Public Use
  Company Number: JP-ROCHE-1404392

PATIENT
  Age: 64 Year
  Sex: Female

DRUGS (10)
  1. ACTEMRA [Suspect]
     Indication: RHEUMATOID ARTHRITIS
     Dosage: DOSAGE IS UNCERTAIN.
     Route: 058
     Dates: start: 20140211, end: 20140501
  2. TACROLIMUS HYDRATE [Suspect]
     Indication: PRODUCT USED FOR UNKNOWN INDICATION
     Route: 048
     Dates: start: 20140211, end: 20140320
  3. TACROLIMUS HYDRATE [Suspect]
     Route: 048
     Dates: start: 20140311, end: 20140531
  4. MEVALOTIN [Concomitant]
     Route: 048
     Dates: start: 20140211, end: 20140531
  5. ROCALTROL [Concomitant]
     Route: 048
     Dates: start: 20140211, end: 20140531
  6. ZYLORIC [Concomitant]
     Route: 048
     Dates: start: 20140211, end: 20140420
  7. PREDONINE [Concomitant]
     Route: 048
     Dates: start: 20140211, end: 20140531
  8. ZITHROMAX [Concomitant]
     Route: 048
     Dates: start: 20140321, end: 20140331
  9. GLAKAY [Concomitant]
     Route: 048
     Dates: start: 20140401, end: 20140520
  10. FEBURIC [Concomitant]
     Route: 048
     Dates: start: 20140411, end: 20140531

REACTIONS (1)
  - Alopecia [Recovering/Resolving]
